FAERS Safety Report 8248617-0 (Version None)
Quarter: 2012Q1

REPORT INFORMATION
  Report Type: 
  Country: None (occurrence: None)
  Receive Date: 20120330
  Receipt Date: 20120326
  Transmission Date: 20120608
  Serious: Yes (Life-Threatening, Hospitalization, Other)
  Sender: FDA-Public Use
  Company Number: US-ASTRAZENECA-2011SE19745

PATIENT
  Age: 86 Year
  Sex: Male

DRUGS (3)
  1. CRESTOR [Suspect]
     Route: 048
  2. TOPROL-XL [Suspect]
     Route: 048
  3. NEXIUM [Suspect]
     Route: 048

REACTIONS (16)
  - COMA [None]
  - ACCIDENT [None]
  - RESTLESSNESS [None]
  - FALL [None]
  - GOUT [None]
  - HAND DEFORMITY [None]
  - ADVERSE EVENT [None]
  - DRUG DOSE OMISSION [None]
  - HYPERCHLORHYDRIA [None]
  - GASTRIC ULCER [None]
  - PAIN [None]
  - NASOPHARYNGITIS [None]
  - PYREXIA [None]
  - GLAUCOMA [None]
  - BLOOD PRESSURE INCREASED [None]
  - MALAISE [None]
